FAERS Safety Report 19508262 (Version 1)
Quarter: 2021Q3

REPORT INFORMATION
  Report Type: Spontaneous
  Country: IT (occurrence: IT)
  Receive Date: 20210708
  Receipt Date: 20210708
  Transmission Date: 20211014
  Serious: Yes (Life-Threatening, Hospitalization)
  Sender: FDA-Public Use
  Company Number: IT-MYLANLABS-2021M1040337

PATIENT
  Age: 70 Year
  Sex: Male

DRUGS (16)
  1. SPIRONOLACTONE. [Suspect]
     Active Substance: SPIRONOLACTONE
     Indication: LEFT VENTRICULAR DYSFUNCTION
     Dosage: THE DOSE WAS INCREASED FURTHER
     Route: 048
  2. DOBUTAMINE [Suspect]
     Active Substance: DOBUTAMINE HYDROCHLORIDE
     Indication: VASOPRESSIVE THERAPY
  3. CLOPIDOGREL [Concomitant]
     Active Substance: CLOPIDOGREL BISULFATE
     Indication: PRODUCT USED FOR UNKNOWN INDICATION
     Dosage: UNK
     Route: 048
  4. NITROGLYCERINE [Concomitant]
     Active Substance: NITROGLYCERIN
     Indication: PRODUCT USED FOR UNKNOWN INDICATION
     Dosage: UNK
     Route: 062
  5. EPINEPHRINE. [Suspect]
     Active Substance: EPINEPHRINE
     Indication: HAEMODYNAMIC INSTABILITY
     Dosage: 0.5 MCG/KG/MIN
     Route: 065
  6. METOPROLOL. [Concomitant]
     Active Substance: METOPROLOL
     Indication: PRODUCT USED FOR UNKNOWN INDICATION
     Dosage: UNK
     Route: 065
  7. FUROSEMIDE. [Suspect]
     Active Substance: FUROSEMIDE
     Dosage: 20MH/H POST IMPELLA IMPLANTATION AND SURGERY
     Route: 065
  8. NORADRENALIN                       /00127501/ [Suspect]
     Active Substance: NOREPINEPHRINE\NOREPINEPHRINE BITARTRATE
     Indication: HAEMODYNAMIC INSTABILITY
     Dosage: 0.5 MCG/KG/MIN
     Route: 065
  9. DOBUTAMINE [Suspect]
     Active Substance: DOBUTAMINE HYDROCHLORIDE
     Indication: CARDIOGENIC SHOCK
     Dosage: UNK
     Route: 065
  10. TORASEMIDE [Suspect]
     Active Substance: TORSEMIDE
     Indication: LEFT VENTRICULAR DYSFUNCTION
     Dosage: UNK
     Route: 048
  11. DOPAMINE [Suspect]
     Active Substance: DOPAMINE HYDROCHLORIDE
     Indication: CARDIOGENIC SHOCK
     Dosage: UNK
     Route: 065
  12. ACETYLSALICYLIC ACID [Concomitant]
     Active Substance: ASPIRIN
     Indication: PRODUCT USED FOR UNKNOWN INDICATION
     Dosage: UNK
     Route: 048
  13. FUROSEMIDE. [Suspect]
     Active Substance: FUROSEMIDE
     Indication: LEFT VENTRICULAR DYSFUNCTION
     Dosage: 10MG/H ON ARRIVAL
     Route: 065
  14. RAMIPRIL. [Concomitant]
     Active Substance: RAMIPRIL
     Indication: PRODUCT USED FOR UNKNOWN INDICATION
     Dosage: UNK
     Route: 065
  15. RANOLAZINE. [Suspect]
     Active Substance: RANOLAZINE
     Indication: LEFT VENTRICULAR DYSFUNCTION
     Dosage: UNK
     Route: 065
  16. DOPAMINE [Suspect]
     Active Substance: DOPAMINE HYDROCHLORIDE
     Indication: VASOPRESSIVE THERAPY

REACTIONS (3)
  - Drug ineffective [Unknown]
  - Pulmonary congestion [Recovering/Resolving]
  - Pulmonary hypertension [Recovering/Resolving]
